FAERS Safety Report 18412325 (Version 1)
Quarter: 2020Q4

REPORT INFORMATION
  Report Type: Spontaneous
  Country: PT (occurrence: PT)
  Receive Date: 20201021
  Receipt Date: 20201021
  Transmission Date: 20210114
  Serious: Yes (Death, Hospitalization, Other)
  Sender: FDA-Public Use
  Company Number: PT-BRISTOL-MYERS SQUIBB COMPANY-BMS-2020-087586

PATIENT
  Age: 64 Year
  Sex: Male

DRUGS (2)
  1. CABOZANTINIB [Concomitant]
     Active Substance: CABOZANTINIB
     Indication: CLEAR CELL RENAL CELL CARCINOMA
     Dosage: FOR 10 DAYS
  2. NIVOLUMAB [Suspect]
     Active Substance: NIVOLUMAB
     Indication: CLEAR CELL RENAL CELL CARCINOMA
     Route: 065

REACTIONS (4)
  - Cytomegalovirus infection [Fatal]
  - Proctitis [Fatal]
  - Clostridium difficile colitis [Unknown]
  - Peripheral sensorimotor neuropathy [Unknown]
